FAERS Safety Report 10220575 (Version 1)
Quarter: 2014Q2

REPORT INFORMATION
  Report Type: Spontaneous
  Country: TW (occurrence: None)
  Receive Date: 20140604
  Receipt Date: 20140604
  Transmission Date: 20141212
  Serious: Yes (Death)
  Sender: FDA-Public Use
  Company Number: FK201402061

PATIENT
  Age: 80 Year
  Sex: Male
  Weight: 59.4 kg

DRUGS (4)
  1. IRINOTECAN (IRINOTECAN) (IRINOTECAN) [Suspect]
     Indication: COLON CANCER METASTATIC
     Dosage: 180 MG/M2, TOTAL DOSE 236 MG
     Dates: start: 20120605, end: 20120607
  2. FLUOROURACIL (FLUOROURACIL) (FLUOROURACIL) [Suspect]
     Indication: COLON CANCER METASTATIC
  3. LEUCOVORIN CALCIUM (LEUCOVORIN CALCIUM) (LEUCOVORIN CALCIUM) [Suspect]
     Indication: COLON CANCER METASTATIC
     Dates: start: 20120605, end: 20120607
  4. AVASTIN (BEVACIZUMAB) (BEVACIZUMAB) [Suspect]
     Indication: COLON CANCER METASTATIC
     Dosage: 5MG/KG, TOTAL DOSE 300MG
     Dates: start: 20120605, end: 20120607

REACTIONS (10)
  - Tumour lysis syndrome [None]
  - Dehydration [None]
  - Renal failure acute [None]
  - Upper gastrointestinal haemorrhage [None]
  - Neutropenic sepsis [None]
  - Metabolic acidosis [None]
  - Hypotension [None]
  - Haemodialysis [None]
  - Respiratory failure [None]
  - Refusal of treatment by relative [None]
